FAERS Safety Report 22387873 (Version 1)
Quarter: 2023Q2

REPORT INFORMATION
  Report Type: Report from Study
  Country: US (occurrence: US)
  Receive Date: 20230531
  Receipt Date: 20230531
  Transmission Date: 20230722
  Serious: Yes (Other)
  Sender: FDA-Public Use
  Company Number: US-AUROBINDO-AUR-APL-2023-039428

PATIENT
  Age: 61 Year
  Sex: Male

DRUGS (6)
  1. DOXYCYCLINE [Suspect]
     Active Substance: DOXYCYCLINE
     Indication: Noninfective conjunctivitis
     Dosage: UNK
     Route: 065
  2. METHYLPREDNISOLONE [Suspect]
     Active Substance: METHYLPREDNISOLONE
     Indication: Noninfective conjunctivitis
     Dosage: 1 PERCENT, EVERY FOUR HOUR
     Route: 065
  3. METHYLPREDNISOLONE [Suspect]
     Active Substance: METHYLPREDNISOLONE
     Indication: Pemphigus
     Dosage: 1 PERCENT, FOUR TIMES/DAY
     Route: 065
     Dates: start: 201911, end: 202002
  4. HEPARIN [Suspect]
     Active Substance: HEPARIN SODIUM
     Indication: Noninfective conjunctivitis
     Dosage: UNK
     Route: 065
  5. LOTEPREDNOL ETABONATE [Suspect]
     Active Substance: LOTEPREDNOL ETABONATE
     Indication: Noninfective conjunctivitis
     Dosage: UNK, TWO TIMES A DAY
     Route: 065
     Dates: start: 201910
  6. OMEGA 3 [Suspect]
     Active Substance: CAPSAICIN
     Indication: Noninfective conjunctivitis
     Dosage: UNK
     Route: 065

REACTIONS (2)
  - Drug ineffective [Unknown]
  - Intraocular pressure increased [Recovering/Resolving]
